FAERS Safety Report 8325413-7 (Version None)
Quarter: 2012Q2

REPORT INFORMATION
  Report Type: 
  Country: None (occurrence: None)
  Receive Date: 20120427
  Receipt Date: 20120418
  Transmission Date: 20120825
  Serious: Yes (Other)
  Sender: FDA-Public Use
  Company Number: 2012SP020484

PATIENT
  Age: 64 Year
  Sex: Male

DRUGS (6)
  1. VASERETIC [Suspect]
     Indication: HYPERTENSION
     Dosage: 1 DF;QD
  2. LANTUS [Concomitant]
  3. ASPIRIN [Concomitant]
  4. NOVORAPID [Concomitant]
  5. NASONEX [Suspect]
     Indication: ACUTE SINUSITIS
     Dosage: 50 MCG;NAS
     Route: 045
     Dates: start: 20120220, end: 20120220
  6. SIMVASTATIN [Concomitant]

REACTIONS (7)
  - AURICULAR SWELLING [None]
  - PYREXIA [None]
  - ANGIOEDEMA [None]
  - ERYTHEMA [None]
  - OTORRHOEA [None]
  - SKIN ULCER [None]
  - BLOOD GLUCOSE INCREASED [None]
